FAERS Safety Report 25089357 (Version 1)
Quarter: 2025Q1

REPORT INFORMATION
  Report Type: Spontaneous
  Country: US (occurrence: US)
  Receive Date: 20250318
  Receipt Date: 20250318
  Transmission Date: 20250408
  Serious: Yes (Other)
  Sender: STRIDES
  Company Number: US-STRIDES ARCOLAB LIMITED-2025SP003414

PATIENT
  Sex: Male

DRUGS (4)
  1. PREDNISOLONE [Suspect]
     Active Substance: PREDNISOLONE
     Indication: Hormone-refractory prostate cancer
     Route: 065
  2. SIPULEUCEL-T [Suspect]
     Active Substance: SIPULEUCEL-T
     Indication: Hormone-refractory prostate cancer
     Route: 065
  3. ABIRATERONE [Suspect]
     Active Substance: ABIRATERONE
     Indication: Hormone-refractory prostate cancer
     Route: 065
  4. DOCETAXEL [Concomitant]
     Active Substance: DOCETAXEL
     Indication: Hormone-refractory prostate cancer
     Route: 065

REACTIONS (2)
  - Disease progression [Unknown]
  - Drug ineffective for unapproved indication [Unknown]
